FAERS Safety Report 8293113-8 (Version None)
Quarter: 2012Q2

REPORT INFORMATION
  Report Type: 
  Country: None (occurrence: None)
  Receive Date: 20120417
  Receipt Date: 20111104
  Transmission Date: 20120825
  Serious: No
  Sender: FDA-Public Use
  Company Number: US-ASTRAZENECA-2011SE50532

PATIENT
  Age: 57 Year
  Sex: Male
  Weight: 86.2 kg

DRUGS (3)
  1. PROZAC [Concomitant]
  2. NEXIUM [Suspect]
     Route: 048
  3. SEROQUEL [Suspect]
     Indication: HALLUCINATION
     Dosage: TOTAL DAILY DOSAGE 400 MG, TWO TIMES A DAY
     Route: 048
     Dates: start: 20070101

REACTIONS (8)
  - HALLUCINATION [None]
  - INSOMNIA [None]
  - DYSURIA [None]
  - DRUG WITHDRAWAL SYNDROME [None]
  - DRUG DOSE OMISSION [None]
  - GASTROOESOPHAGEAL REFLUX DISEASE [None]
  - FUNCTIONAL GASTROINTESTINAL DISORDER [None]
  - CHOKING [None]
